FAERS Safety Report 21925567 (Version 5)
Quarter: 2023Q2

REPORT INFORMATION
  Report Type: Spontaneous
  Country: JP (occurrence: JP)
  Receive Date: 20230130
  Receipt Date: 20230413
  Transmission Date: 20230722
  Serious: Yes (Hospitalization, Other)
  Sender: FDA-Public Use
  Company Number: JP-GLAXOSMITHKLINE-JP2023JPN010296

PATIENT

DRUGS (18)
  1. BENLYSTA [Suspect]
     Active Substance: BELIMUMAB
     Indication: Systemic lupus erythematosus
     Dosage: 200 MG, WE
     Route: 058
     Dates: start: 20221212, end: 20221226
  2. SULFAMETHOXAZOLE\TRIMETHOPRIM [Concomitant]
     Active Substance: SULFAMETHOXAZOLE\TRIMETHOPRIM
     Dosage: 1 DF, ON MONDAY AND FRIDAY, AFTER BREAKFAST
     Dates: end: 20221226
  3. PREDNISOLONE [Concomitant]
     Active Substance: PREDNISOLONE
     Dosage: 3 MG, QD, AFTER BREAKFAST
  4. BREDININ OD TABLETS [Concomitant]
     Dosage: 150 MG, QD, AFTER BREAKFAST
  5. PROGRAF [Concomitant]
     Active Substance: TACROLIMUS
     Dosage: 3 MG, QD, AFTER DINNER
  6. AZILVA TABLETS [Concomitant]
     Dosage: 40 MG, QD, AFTER BREAKFAST
  7. ASPIRIN [Concomitant]
     Active Substance: ASPIRIN
     Dosage: 100 MG, QD, AFTER BREAKFAST
  8. TOCOPHEROL NICOTINATE CAPSULE [Concomitant]
     Dosage: 200 MG, TID, AFTER EACH MEAL
  9. NEXIUM [Concomitant]
     Active Substance: ESOMEPRAZOLE MAGNESIUM
     Dosage: 20 MG, QD, AFTER DINNER
  10. METHYLCOBALAMIN [Concomitant]
     Active Substance: METHYLCOBALAMIN
     Dosage: 500 ?G, BID, AFTER BREAKFAST AND DINNER
  11. MENATETRENONE CAPSULES [Concomitant]
     Dosage: 15 MG, TID, AFTER EACH MEAL
  12. KETOPROFEN (PAP) [Concomitant]
     Dosage: 30 MG, TID, KNEE
  13. RIVOTRIL [Concomitant]
     Active Substance: CLONAZEPAM
     Dosage: 0.5 MG, QD, AT BEDTIME
  14. BONVIVA TABLET (IBANDRONATE SODIUM MONOHYDRATE) [Concomitant]
     Dosage: 100 MG, QD, ON AWAKENING
  15. PLAQUENIL [Concomitant]
     Active Substance: HYDROXYCHLOROQUINE SULFATE
     Dosage: 200 MG, QD, AFTER BREAKFAST
  16. CELECOXIB TABLET [Concomitant]
     Dosage: 100 MG, QD, AFTER DINNER
  17. AMLODIPINE BESYLATE [Concomitant]
     Active Substance: AMLODIPINE BESYLATE
     Dosage: 2.5 MG, QD, AFTER BREAKFAST
  18. FEBUXOSTAT [Concomitant]
     Active Substance: FEBUXOSTAT
     Dosage: 10 MG, QD, AFTER BREAKFAST

REACTIONS (9)
  - Arthralgia [Recovered/Resolved]
  - Pain [Recovered/Resolved]
  - Malaise [Recovered/Resolved]
  - Pyrexia [Recovered/Resolved]
  - Tachypnoea [Recovered/Resolved]
  - Dehydration [Recovered/Resolved]
  - C-reactive protein increased [Recovered/Resolved]
  - White blood cell count increased [Recovered/Resolved]
  - Insomnia [Recovered/Resolved]

NARRATIVE: CASE EVENT DATE: 20221215
